FAERS Safety Report 15813801 (Version 6)
Quarter: 2021Q1

REPORT INFORMATION
  Report Type: Spontaneous
  Country: US (occurrence: US)
  Receive Date: 20190111
  Receipt Date: 20210326
  Transmission Date: 20210419
  Serious: No
  Sender: FDA-Public Use
  Company Number: US-ASTRAZENECA-2019SE00751

PATIENT
  Age: 73 Year
  Sex: Male
  Weight: 87.1 kg

DRUGS (1)
  1. BYDUREON BCISE [Suspect]
     Active Substance: EXENATIDE
     Indication: TYPE 2 DIABETES MELLITUS
     Route: 058
     Dates: start: 2018

REACTIONS (5)
  - Injection site haemorrhage [Recovered/Resolved]
  - Drug delivery system malfunction [Unknown]
  - Device leakage [Unknown]
  - Product use issue [Unknown]
  - Intentional device misuse [Recovered/Resolved]

NARRATIVE: CASE EVENT DATE: 2018
